FAERS Safety Report 5131097-1 (Version None)
Quarter: 2006Q3

REPORT INFORMATION
  Report Type: 
  Country: None (occurrence: None)
  Receive Date: 20060825
  Receipt Date: 20060403
  Transmission Date: 20061208
  Serious: Yes (Other)
  Sender: FDA-Public Use
  Company Number: 2006046779

PATIENT
  Age: 61 Year
  Sex: Male
  Weight: 89 kg

DRUGS (32)
  1. VFEND [Suspect]
     Indication: FUNGAL INFECTION
     Dosage: 400 MG (200 MG, 2 IN 1 D), GASTROENTERAL USE
     Dates: start: 20060315, end: 20060331
  2. ACULAR [Concomitant]
  3. AMBIEN [Concomitant]
  4. NEURONTIN [Concomitant]
  5. K-DUR 10 [Concomitant]
  6. ALBUTEROL SOLUTION (SALBUTAMOL) [Concomitant]
  7. CLARINEX [Concomitant]
  8. DARVOCET [Concomitant]
  9. CORTISPORIN OPTHALMIC (HYDROCORTISONE ACETATE, NEOMYCIN SULFATE, POLYM [Concomitant]
  10. CATAPRES [Concomitant]
  11. DILACOR (DILTIAZEM HYDROCHLORIDE) [Concomitant]
  12. LOPRESSOR [Concomitant]
  13. SPIRIVA [Concomitant]
  14. NORMODYNE [Concomitant]
  15. CHROMAGEN (ASCORBIC ACID, CYANOCOBALAMIN, FERROUS FUMARATE, STOMACH DE [Concomitant]
  16. FORADIL METERED DOSE INHALER (FORMOTEROL FUMARATE) [Concomitant]
  17. NEPHROCAPS (FOLIC ACID, VITAMINS NOS) [Concomitant]
  18. FOLIC ACID [Concomitant]
  19. NASALIDE [Concomitant]
  20. SOLU-CORTEF [Concomitant]
  21. LOVENOX [Concomitant]
  22. ACETAMINOPHEN [Concomitant]
  23. CANCIDAS (DROTRECOGIN ALFA) [Concomitant]
  24. MAXIPIME [Concomitant]
  25. GENTAMICIN SULFATE [Concomitant]
  26. ZOSYN [Concomitant]
  27. DOPAMINE HCL [Concomitant]
  28. HEPARIN [Concomitant]
  29. VANCOMYCIN [Concomitant]
  30. FLUCONAZOLE [Concomitant]
  31. PLAQUENIL [Concomitant]
  32. METHOTREXATE [Concomitant]

REACTIONS (1)
  - VISUAL DISTURBANCE [None]
